FAERS Safety Report 9587701 (Version 2)
Quarter: 2013Q4

REPORT INFORMATION
  Report Type: Spontaneous
  Country: US (occurrence: US)
  Receive Date: 20131003
  Receipt Date: 20131003
  Transmission Date: 20140711
  Serious: No
  Sender: FDA-Public Use
  Company Number: US-COVIDIEN/TYCO HEALTHCARE/MALLINCKRODT-T201300016

PATIENT
  Sex: Female

DRUGS (15)
  1. EXALGO EXTENDED RELEASE [Suspect]
     Indication: PAIN
     Dosage: 12 MG QD
  2. EXALGO EXTENDED RELEASE [Suspect]
     Dosage: 8 MG, QD
  3. HYDROMORPHONE [Suspect]
     Indication: BREAKTHROUGH PAIN
     Dosage: 4 MG, Q 4-6 HOURS, PRN
     Route: 048
  4. HYDROMORPHONE [Suspect]
     Indication: NEUROPATHY PERIPHERAL
     Dosage: UNK
  5. HYDROMORPHONE [Suspect]
     Indication: PAIN
  6. ATIVAN [Suspect]
     Indication: BREAKTHROUGH PAIN
     Dosage: 0.5 MG, WITH EACH HYDROMORPHONE IR DOSE
  7. ATIVAN [Suspect]
     Indication: NEUROPATHY PERIPHERAL
  8. MACROBID                           /00024401/ [Concomitant]
     Indication: URINARY TRACT INFECTION
     Dosage: UNK
  9. CHLORTHALIDONE [Concomitant]
     Indication: FLUID RETENTION
     Dosage: UNK
  10. BUMEX [Concomitant]
     Indication: CARDIAC FAILURE CONGESTIVE
     Dosage: UNK
  11. INSPRA                             /01613601/ [Concomitant]
     Indication: CARDIAC FAILURE CONGESTIVE
     Dosage: UNK
  12. SPIRONOLACTONE [Concomitant]
     Indication: CARDIAC FAILURE CONGESTIVE
     Dosage: UNK
  13. COUMADIN                           /00014802/ [Concomitant]
     Indication: ANTICOAGULANT THERAPY
     Dosage: UNK
  14. MOM [Concomitant]
     Indication: CONSTIPATION
  15. MIRALAX                            /00754501/ [Concomitant]
     Indication: CONSTIPATION

REACTIONS (8)
  - Urinary tract infection [Recovered/Resolved]
  - Burning sensation [Not Recovered/Not Resolved]
  - Hypoaesthesia [Not Recovered/Not Resolved]
  - Paraesthesia [Unknown]
  - Feeling abnormal [Recovering/Resolving]
  - Somnolence [Recovering/Resolving]
  - Pain [Recovering/Resolving]
  - Drug ineffective [Unknown]
